FAERS Safety Report 25946557 (Version 1)
Quarter: 2025Q4

REPORT INFORMATION
  Report Type: Spontaneous
  Country: US (occurrence: US)
  Receive Date: 20251022
  Receipt Date: 20251022
  Transmission Date: 20260118
  Serious: No
  Sender: PACIRA
  Company Number: US-ORG100016242-2025000233

PATIENT

DRUGS (1)
  1. ZILRETTA [Suspect]
     Active Substance: TRIAMCINOLONE ACETONIDE
     Indication: Product used for unknown indication
     Dosage: NOT PROVIDED
     Route: 050

REACTIONS (4)
  - Condition aggravated [Unknown]
  - Gait disturbance [Unknown]
  - Impaired work ability [Unknown]
  - Emergency care [Unknown]
